FAERS Safety Report 4416603-4 (Version None)
Quarter: 2004Q3

REPORT INFORMATION
  Report Type: 
  Country: None (occurrence: None)
  Receive Date: 20040802
  Receipt Date: 20040722
  Transmission Date: 20050211
  Serious: Yes (Life-Threatening, Hospitalization)
  Sender: FDA-Public Use
  Company Number: 200410497BNE

PATIENT
  Age: 71 Year
  Sex: Female
  Weight: 75 kg

DRUGS (9)
  1. ASPIRIN [Suspect]
     Indication: ANGINA UNSTABLE
     Dosage: 75 MG, TOTAL DAILY, ORAL
     Route: 048
     Dates: start: 20040620, end: 20040625
  2. ENOXAPARIN SODIUM [Suspect]
     Indication: ANGINA UNSTABLE
     Dosage: 80 MG, TOTAL DAILY, SUBCUTANEOUS
     Route: 058
     Dates: start: 20040619, end: 20040625
  3. CLOPIDOGREL [Suspect]
     Indication: ANGINA UNSTABLE
     Dosage: SEE IMAGE
     Route: 048
     Dates: start: 20040620, end: 20040625
  4. CLOPIDOGREL [Suspect]
     Indication: ANGINA UNSTABLE
     Dosage: SEE IMAGE
     Route: 048
     Dates: start: 20040620
  5. SOTALOL HCL [Concomitant]
  6. VALSARTAN [Concomitant]
  7. GAVISCON [Concomitant]
  8. SIMVASTATIN [Concomitant]
  9. LISINOPRIL [Concomitant]

REACTIONS (7)
  - BLOOD CHOLESTEROL INCREASED [None]
  - DIZZINESS [None]
  - DYSPEPSIA [None]
  - PALLOR [None]
  - RENAL IMPAIRMENT [None]
  - RETROPERITONEAL HAEMORRHAGE [None]
  - VOMITING [None]
